FAERS Safety Report 18258111 (Version 1)
Quarter: 2020Q3

REPORT INFORMATION
  Report Type: Report from Study
  Country: CA (occurrence: CA)
  Receive Date: 20200911
  Receipt Date: 20200911
  Transmission Date: 20201103
  Serious: Yes (Other)
  Sender: FDA-Public Use
  Company Number: CA-JNJFOC-20200243565

PATIENT
  Age: 12 Year
  Sex: Male
  Weight: 28 kg

DRUGS (2)
  1. REMICADE [Suspect]
     Active Substance: INFLIXIMAB
     Indication: COLITIS ULCERATIVE
     Route: 042
     Dates: start: 20191012
  2. REMICADE [Suspect]
     Active Substance: INFLIXIMAB
     Dosage: RELOADING 10 MG/KG WEEK 0, 2, 4 THEN EVERY 4 WEEKS.
     Route: 042
     Dates: start: 20200226

REACTIONS (5)
  - Body temperature increased [Recovered/Resolved with Sequelae]
  - Colitis ulcerative [Unknown]
  - Off label use [Unknown]
  - Product use issue [Unknown]
  - Infusion related reaction [Recovered/Resolved with Sequelae]

NARRATIVE: CASE EVENT DATE: 20191012
